FAERS Safety Report 14071021 (Version 1)
Quarter: 2017Q4

REPORT INFORMATION
  Report Type: Spontaneous
  Country: US (occurrence: US)
  Receive Date: 20171010
  Receipt Date: 20171010
  Transmission Date: 20180321
  Serious: No
  Sender: FDA-Public Use
  Company Number: US-JNJFOC-20170919326

PATIENT
  Sex: Female

DRUGS (1)
  1. IMBRUVICA [Suspect]
     Active Substance: IBRUTINIB
     Indication: CHRONIC LYMPHOCYTIC LEUKAEMIA
     Route: 048
     Dates: start: 20170721

REACTIONS (6)
  - Petechiae [Unknown]
  - Ear haemorrhage [Unknown]
  - Vascular rupture [Unknown]
  - Stomatitis [Unknown]
  - Fatigue [Unknown]
  - Contusion [Unknown]
